FAERS Safety Report 5007303-0 (Version None)
Quarter: 2006Q2

REPORT INFORMATION
  Report Type: 
  Country: None (occurrence: None)
  Receive Date: 20060517
  Receipt Date: 20060512
  Transmission Date: 20061013
  Serious: Yes (Death)
  Sender: FDA-Public Use
  Company Number: AE-506-146

PATIENT
  Age: 72 Year
  Sex: Male

DRUGS (3)
  1. LIDODERM [Suspect]
     Indication: BACK PAIN
     Dosage: 1 PATCH A DAY
     Dates: start: 20051201
  2. LIDODERM [Suspect]
     Indication: INTERVERTEBRAL DISC PROTRUSION
     Dosage: 1 PATCH A DAY
     Dates: start: 20051201
  3. MORPHINE [Concomitant]

REACTIONS (2)
  - DRUG INEFFECTIVE [None]
  - NEOPLASM MALIGNANT [None]
